FAERS Safety Report 5830753-7 (Version None)
Quarter: 2008Q3

REPORT INFORMATION
  Report Type: 
  Country: None (occurrence: None)
  Receive Date: 20080801
  Receipt Date: 20071116
  Transmission Date: 20090109
  Serious: Yes (Hospitalization)
  Sender: FDA-Public Use
  Company Number: US-BRISTOL-MYERS SQUIBB COMPANY-13977434

PATIENT
  Sex: Female

DRUGS (1)
  1. COUMADIN [Suspect]

REACTIONS (2)
  - ABDOMINAL PAIN UPPER [None]
  - PROTHROMBIN TIME PROLONGED [None]
